FAERS Safety Report 8059742-1 (Version None)
Quarter: 2012Q1

REPORT INFORMATION
  Report Type: 
  Country: None (occurrence: None)
  Receive Date: 20120120
  Receipt Date: 20120117
  Transmission Date: 20120608
  Serious: Yes (Other)
  Sender: FDA-Public Use
  Company Number: PHEH2011US012617

PATIENT
  Age: 61 Year
  Sex: Female

DRUGS (33)
  1. DIOVAN [Suspect]
     Dosage: 80 MG TID, DAILY
  2. ANTIHYPERTENSIVES [Concomitant]
  3. VENTOLIN [Concomitant]
  4. PROMETRIUM [Concomitant]
  5. HYDROCODONE BITARTRATE [Concomitant]
     Dosage: 60 MG, DAILY
  6. RHINOCORT [Concomitant]
  7. ACIDOPHILUS ^ZYMA^ [Concomitant]
  8. SODIUM CHLORIDE INJ [Concomitant]
  9. WELLBUTRIN [Concomitant]
  10. MENEST [Concomitant]
  11. TINACTIN [Concomitant]
  12. ECHINACEA [Concomitant]
  13. PROVENTIL [Concomitant]
  14. WOMEN HEALTH COMBINATION [Concomitant]
  15. PULMICORT-100 [Concomitant]
  16. ESTRATEST [Concomitant]
  17. ESTROGENS [Concomitant]
     Route: 003
  18. TIZANIDINE HCL [Concomitant]
  19. VITAMIN D [Concomitant]
  20. SINGULAIR [Concomitant]
     Dosage: 1 DF(UNK), UNK
  21. ADVAIR DISKUS 100/50 [Concomitant]
  22. GABAPENTIN [Concomitant]
  23. ZADITOR [Concomitant]
  24. CRONIFED A [Concomitant]
  25. TESLA PEARLS [Concomitant]
  26. CENTRUM [Concomitant]
  27. CALCIUM [Concomitant]
  28. VERAPAMIL [Suspect]
     Dosage: 11 DF (120 MG), DAILY
  29. ANTIBIOTICS [Concomitant]
  30. ZYRTEC [Concomitant]
  31. CLOROTRIMETON [Concomitant]
  32. SAMBUCOL [Concomitant]
  33. PROFORMIS [Concomitant]

REACTIONS (17)
  - SOMNOLENCE [None]
  - EYE DISORDER [None]
  - MOVEMENT DISORDER [None]
  - SPINAL COLUMN STENOSIS [None]
  - MALAISE [None]
  - NASAL CONGESTION [None]
  - SUICIDAL IDEATION [None]
  - FIBROMYALGIA [None]
  - STRESS [None]
  - PAIN IN EXTREMITY [None]
  - OEDEMA PERIPHERAL [None]
  - RHINITIS [None]
  - MEMORY IMPAIRMENT [None]
  - VISUAL IMPAIRMENT [None]
  - METAMORPHOPSIA [None]
  - ASTHMA [None]
  - NEUROPATHY PERIPHERAL [None]
